FAERS Safety Report 8531926-5 (Version None)
Quarter: 2012Q3

REPORT INFORMATION
  Report Type: 
  Country: None (occurrence: None)
  Receive Date: 20120723
  Receipt Date: 20120713
  Transmission Date: 20120928
  Serious: Yes (Hospitalization)
  Sender: FDA-Public Use
  Company Number: US-ELI_LILLY_AND_COMPANY-US201207004584

PATIENT
  Sex: Female
  Weight: 113.38 kg

DRUGS (18)
  1. BYETTA [Suspect]
     Dosage: 10 UG, BID
     Route: 058
     Dates: start: 20111201
  2. CARDIZEM [Concomitant]
     Indication: CARDIAC DISORDER
     Dosage: 120 MG, QD
     Route: 048
  3. VITAMIN D [Concomitant]
     Dosage: 1000 IU, QD
  4. AMITRIPTYLINE HCL [Concomitant]
     Indication: SLEEP DISORDER
     Dosage: 50 MG, QD
     Route: 048
  5. HYDROCODONE [Concomitant]
     Indication: PAIN
     Dosage: 5 MG, PRN
     Route: 048
  6. COUMADIN [Concomitant]
     Dosage: 1 DF, UNK
  7. ZESTRIL                                 /USA/ [Concomitant]
     Indication: HYPERTENSION
     Dosage: 20 MG, QD
     Route: 048
  8. COLACE [Concomitant]
     Dosage: 100 MG, BID
     Route: 048
  9. SPIRIVA [Concomitant]
     Indication: ASTHMA
     Dosage: 1 DF, UNK
     Route: 055
  10. BYETTA [Suspect]
     Indication: TYPE 2 DIABETES MELLITUS
     Dosage: 5 UG, BID
     Route: 058
  11. HUMALOG [Concomitant]
     Indication: TYPE 2 DIABETES MELLITUS
     Dosage: 1 DF, UNK
     Route: 058
  12. GABAPENTIN [Concomitant]
     Indication: DIABETIC NEUROPATHY
     Dosage: 1 DF, UNK
  13. ONGLYZA [Concomitant]
     Indication: TYPE 2 DIABETES MELLITUS
     Dosage: 2.5 MG, QD
     Route: 048
  14. BYETTA [Suspect]
     Dosage: 10 UG, BID
     Route: 058
     Dates: end: 20110916
  15. FUROSEMIDE [Concomitant]
     Indication: POLYURIA
     Dosage: 80 MG, BID
  16. SYMBICORT [Concomitant]
     Indication: ASTHMA
     Dosage: 1 DF, UNK
     Route: 055
  17. LEVEMIR [Concomitant]
     Indication: TYPE 2 DIABETES MELLITUS
     Dosage: 1 DF, UNK
     Route: 058
  18. ZOLPIDEM [Concomitant]
     Indication: SLEEP DISORDER
     Dosage: 5 MG, EACH EVENING
     Route: 048

REACTIONS (6)
  - FEMUR FRACTURE [None]
  - THROMBOSIS [None]
  - FALL [None]
  - SENSORY LOSS [None]
  - KNEE ARTHROPLASTY [None]
  - WEIGHT DECREASED [None]
